FAERS Safety Report 5148175-3 (Version None)
Quarter: 2006Q4

REPORT INFORMATION
  Report Type: 
  Country: None (occurrence: None)
  Receive Date: 20061106
  Receipt Date: 20061026
  Transmission Date: 20070319
  Serious: Yes (Other)
  Sender: FDA-Public Use
  Company Number: 230247

PATIENT
  Sex: Female

DRUGS (1)
  1. XOLAIR [Suspect]
     Indication: DRUG USE FOR UNKNOWN INDICATION
     Dosage: SUBCUTANEOUS
     Route: 058
     Dates: start: 20010101

REACTIONS (2)
  - ANTI-NEUTROPHIL CYTOPLASMIC ANTIBODY POSITIVE VASCULITIS [None]
  - ANTINUCLEAR ANTIBODY POSITIVE [None]
